FAERS Safety Report 6927330-3 (Version None)
Quarter: 2010Q3

REPORT INFORMATION
  Report Type: 
  Country: None (occurrence: None)
  Receive Date: 20100817
  Receipt Date: 20100810
  Transmission Date: 20110219
  Serious: No
  Sender: FDA-Public Use
  Company Number: US-BIOGENIDEC-2010BI027701

PATIENT
  Age: 20 Year
  Sex: Male

DRUGS (2)
  1. TYSABRI [Suspect]
     Indication: CROHN'S DISEASE
     Route: 042
     Dates: start: 20090211, end: 20090201
  2. TYSABRI [Suspect]
     Route: 042
     Dates: start: 20100528

REACTIONS (3)
  - CHEST PAIN [None]
  - FLUSHING [None]
  - URTICARIA [None]
